FAERS Safety Report 9596562 (Version 2)
Quarter: 2013Q4

REPORT INFORMATION
  Report Type: Spontaneous
  Country: IT (occurrence: IT)
  Receive Date: 20131004
  Receipt Date: 20131023
  Transmission Date: 20140711
  Serious: Yes (Other)
  Sender: FDA-Public Use
  Company Number: PHHY2013IT109943

PATIENT
  Age: 80 Year
  Sex: Male

DRUGS (8)
  1. TOLEP [Suspect]
     Indication: DRUG ABUSE
     Dosage: 6 G, UNK
     Route: 048
     Dates: start: 20130919, end: 20130919
  2. TOTALIP [Suspect]
     Indication: DRUG ABUSE
     Dosage: 200 MG, UNK
     Route: 048
     Dates: start: 20130919, end: 20130919
  3. EUTIROX [Suspect]
     Indication: DRUG ABUSE
     Dosage: 750 UG, UNK
     Route: 048
     Dates: start: 20130919, end: 20130919
  4. LASIX [Suspect]
     Indication: DRUG ABUSE
     Dosage: 250 MG, UNK
     Route: 048
     Dates: start: 20130919, end: 20130919
  5. TRIATEC [Suspect]
     Indication: DRUG ABUSE
     Dosage: 37.5 MG, UNK
     Route: 048
     Dates: start: 20130919, end: 20130919
  6. AXAGON [Suspect]
     Indication: DRUG ABUSE
     Dosage: 400 MG, UNK
     Route: 048
     Dates: start: 20130919, end: 20130919
  7. TIKLID [Concomitant]
     Dosage: 500 MG, UNK
     Route: 048
  8. CONGESCOR [Concomitant]
     Dosage: 2.5 MG, UNK
     Route: 048

REACTIONS (2)
  - Injury [Recovering/Resolving]
  - Fall [Recovering/Resolving]
